FAERS Safety Report 9280945 (Version 1)
Quarter: 2013Q2

REPORT INFORMATION
  Report Type: Spontaneous
  Country: US (occurrence: US)
  Receive Date: 20130509
  Receipt Date: 20130509
  Transmission Date: 20140414
  Serious: No
  Sender: FDA-Public Use
  Company Number: US-009507513-1305USA000738

PATIENT
  Sex: Female

DRUGS (2)
  1. SAPHRIS [Suspect]
     Indication: BIPOLAR DISORDER
     Dosage: 5 MG, QPM
     Route: 060
     Dates: end: 201304
  2. SAPHRIS [Suspect]
     Dosage: 10 MG, QPM
     Route: 060
     Dates: start: 201304

REACTIONS (2)
  - Oedema peripheral [Unknown]
  - Inappropriate schedule of drug administration [Unknown]
